FAERS Safety Report 19381385 (Version 1)
Quarter: 2021Q2

REPORT INFORMATION
  Report Type: Spontaneous
  Country: US (occurrence: US)
  Receive Date: 20210604
  Receipt Date: 20210604
  Transmission Date: 20210717
  Serious: Yes (Death)
  Sender: FDA-Public Use
  Company Number: None

PATIENT
  Age: 77 Year
  Sex: Female

DRUGS (15)
  1. TACROLIMUS. [Suspect]
     Active Substance: TACROLIMUS
     Indication: LUNG TRANSPLANT
     Route: 048
     Dates: start: 20090704
  2. ELIQUIS [Concomitant]
     Active Substance: APIXABAN
     Dates: start: 20090713
  3. MAG?OXIDE [Concomitant]
     Active Substance: MAGNESIUM OXIDE
     Dates: start: 20090713
  4. PRAVASTATIN. [Concomitant]
     Active Substance: PRAVASTATIN
     Dates: start: 20090713
  5. SULFAMETH/TRIMETHOPRIM [Concomitant]
     Active Substance: SULFAMETHOXAZOLE\TRIMETHOPRIM
     Dates: start: 20090713
  6. IBANDRONATE [Concomitant]
     Active Substance: IBANDRONATE SODIUM
     Dates: start: 20210517
  7. MULTIVITAMIN [Concomitant]
     Active Substance: VITAMINS
     Dates: start: 20090713
  8. ACYCLOVIR 800MG [Concomitant]
     Active Substance: ACYCLOVIR
     Dates: start: 20090713
  9. ASPIRIN 81MG EC [Concomitant]
     Dates: start: 20090713
  10. PREDNISONE. [Concomitant]
     Active Substance: PREDNISONE
     Dates: start: 20090713
  11. DILTIAZEM CD 120MG [Concomitant]
     Dates: start: 20090713
  12. PANTOPRAZOLE [Concomitant]
     Active Substance: PANTOPRAZOLE
     Dates: start: 20090713
  13. MYCOPHENOLATE [Suspect]
     Active Substance: MYCOPHENOLIC ACID
     Indication: TRANSPLANT
     Route: 048
     Dates: start: 20090704
  14. BUSPIRONE [Concomitant]
     Active Substance: BUSPIRONE HYDROCHLORIDE
     Dates: start: 20090713
  15. FOLIC ACID. [Concomitant]
     Active Substance: FOLIC ACID
     Dates: start: 20090713

REACTIONS (1)
  - Sudden death [None]

NARRATIVE: CASE EVENT DATE: 20210528
